FAERS Safety Report 4477910-2 (Version None)
Quarter: 2004Q4

REPORT INFORMATION
  Report Type: 
  Country: None (occurrence: None)
  Receive Date: 20041018
  Receipt Date: 20041014
  Transmission Date: 20050328
  Serious: Yes (Hospitalization)
  Sender: FDA-Public Use
  Company Number: DE-MERCK-0410DEU00464

PATIENT
  Age: 71 Year
  Sex: Female

DRUGS (1)
  1. VIOXX [Suspect]
     Indication: OSTEOARTHRITIS
     Route: 048
     Dates: start: 20000101

REACTIONS (15)
  - ALOPECIA [None]
  - APHTHOUS STOMATITIS [None]
  - ASTHENIA [None]
  - DIARRHOEA [None]
  - DIZZINESS [None]
  - EAR PAIN [None]
  - FACE OEDEMA [None]
  - FATIGUE [None]
  - FLATULENCE [None]
  - INSOMNIA [None]
  - LABORATORY TEST ABNORMAL [None]
  - MUSCLE CRAMP [None]
  - OSTEOARTHRITIS [None]
  - PRURITUS [None]
  - VITAMIN B12 DEFICIENCY [None]
